FAERS Safety Report 6608954-X (Version None)
Quarter: 2010Q1

REPORT INFORMATION
  Report Type: 
  Country: None (occurrence: None)
  Receive Date: 20100301
  Receipt Date: 20100222
  Transmission Date: 20100710
  Serious: Yes (Other)
  Sender: FDA-Public Use
  Company Number: US-B.I. PHARMACEUTICALS,INC./RIDGEFIELD-2010-BP-02090BP

PATIENT
  Age: 66 Year
  Sex: Female

DRUGS (6)
  1. FLOMAX [Suspect]
     Indication: URINARY RETENTION
     Dosage: 0.8 MG
     Route: 048
     Dates: start: 20040101
  2. THYROID TAB [Concomitant]
     Indication: HYPOTHYROIDISM
  3. PENTOXIFYLLINE [Concomitant]
     Indication: SCAR
  4. NASONEX [Concomitant]
     Indication: MULTIPLE ALLERGIES
  5. TRAZODONE HCL [Concomitant]
     Indication: INSOMNIA
  6. METAMUCIL-2 [Concomitant]
     Indication: INTESTINAL FUNCTIONAL DISORDER

REACTIONS (3)
  - ANAL CANCER [None]
  - CYSTITIS [None]
  - RHINORRHOEA [None]
